FAERS Safety Report 21387383 (Version 1)
Quarter: 2022Q3

REPORT INFORMATION
  Report Type: Spontaneous
  Country: US (occurrence: None)
  Receive Date: 20220926
  Receipt Date: 20220926
  Transmission Date: 20221027
  Serious: No
  Sender: FDA-Public Use
  Company Number: None

PATIENT
  Age: 43 Year
  Sex: Female
  Weight: 74.84 kg

DRUGS (1)
  1. HUMIRA [Suspect]
     Active Substance: ADALIMUMAB
     Indication: Rheumatoid arthritis
     Dosage: FREQUENCY : EVERY OTHER WEEK;?INJECT 40MG SUBCUTANEOUSLY EVERY 2 WEEKS IN THE?ABDOMEN OR THIGH ROTAT
     Route: 058
     Dates: start: 202109

REACTIONS (2)
  - COVID-19 [None]
  - Surgery [None]
